FAERS Safety Report 9168221 (Version 1)
Quarter: 2013Q1

REPORT INFORMATION
  Report Type: Spontaneous
  Country: US (occurrence: US)
  Receive Date: 20130318
  Receipt Date: 20130318
  Transmission Date: 20140127
  Serious: No
  Sender: FDA-Public Use
  Company Number: US-TEVA-392379USA

PATIENT
  Sex: Male

DRUGS (2)
  1. NUVIGIL [Suspect]
  2. VIIBRYD [Concomitant]
     Indication: DEPRESSION

REACTIONS (2)
  - Dissociation [Unknown]
  - Drug diversion [Unknown]
